FAERS Safety Report 7414450-2 (Version None)
Quarter: 2011Q2

REPORT INFORMATION
  Report Type: 
  Country: None (occurrence: None)
  Receive Date: 20110414
  Receipt Date: 20101110
  Transmission Date: 20111010
  Serious: Yes (Hospitalization)
  Sender: FDA-Public Use
  Company Number: US-BAYER-201016327NA

PATIENT
  Age: 40 Year
  Sex: Female
  Weight: 86 kg

DRUGS (5)
  1. YAZ [Suspect]
     Indication: PRODUCT USED FOR UNKNOWN INDICATION
     Dosage: AS USED DOSE: UNK
     Route: 048
     Dates: start: 20030901, end: 20031001
  2. YASMIN [Suspect]
     Dosage: AS USED DOSE: UNK
     Route: 048
     Dates: start: 20030701, end: 20031001
  3. MEDROXYPROGESTERONE [Concomitant]
     Dosage: 10 MG, UNK
  4. PROVERA [Concomitant]
     Dosage: UNK
  5. OCELLA [Suspect]
     Indication: PRODUCT USED FOR UNKNOWN INDICATION
     Dosage: AS USED DOSE: UNK
     Route: 048
     Dates: start: 20030701

REACTIONS (5)
  - PULMONARY EMBOLISM [None]
  - COUGH [None]
  - DYSPNOEA [None]
  - MENTAL DISORDER [None]
  - CHEST DISCOMFORT [None]
